FAERS Safety Report 9558388 (Version 2)
Quarter: 2013Q4

REPORT INFORMATION
  Report Type: Spontaneous
  Country: DE (occurrence: DE)
  Receive Date: 20130926
  Receipt Date: 20131125
  Transmission Date: 20140711
  Serious: Yes (Other)
  Sender: FDA-Public Use
  Company Number: PHHY2013DE106939

PATIENT
  Sex: Male
  Weight: 90 kg

DRUGS (1)
  1. EXJADE [Suspect]
     Dosage: ALTERNATELY 2000 MG AND 1500 MG ONCE DAILY
     Route: 048
     Dates: start: 20100904, end: 20130918

REACTIONS (3)
  - Superinfection [Recovered/Resolved]
  - Agranulocytosis [Recovered/Resolved]
  - Rash [Recovered/Resolved]
